FAERS Safety Report 15424251 (Version 1)
Quarter: 2018Q3

REPORT INFORMATION
  Report Type: Spontaneous
  Country: US (occurrence: US)
  Receive Date: 20180925
  Receipt Date: 20180925
  Transmission Date: 20181010
  Serious: Yes (Other)
  Sender: FDA-Public Use
  Company Number: US-BAYER-2018-175080

PATIENT
  Sex: Female

DRUGS (7)
  1. MIDOL COMPLETE [Suspect]
     Active Substance: ACETAMINOPHEN\CAFFEINE\PYRILAMINE MALEATE
  2. AFRIN NO DRIP EXTRA MOISTURIZING [Suspect]
     Active Substance: OXYMETAZOLINE HYDROCHLORIDE
  3. CIPRO [Suspect]
     Active Substance: CIPROFLOXACIN HYDROCHLORIDE
  4. AVELOX [Suspect]
     Active Substance: MOXIFLOXACIN HYDROCHLORIDE
  5. BAYER ASPIRIN [Suspect]
     Active Substance: ASPIRIN
  6. CLARITIN?D NOS [Suspect]
     Active Substance: LORATADINE\PSEUDOEPHEDRINE SULFATE
  7. ALEVE [Suspect]
     Active Substance: NAPROXEN SODIUM

REACTIONS (3)
  - Immune system disorder [Unknown]
  - Adverse event [Unknown]
  - Drug hypersensitivity [Unknown]
